FAERS Safety Report 5615827-8 (Version None)
Quarter: 2008Q1

REPORT INFORMATION
  Report Type: 
  Country: None (occurrence: None)
  Receive Date: 20080206
  Receipt Date: 20080125
  Transmission Date: 20080703
  Serious: Yes (Other)
  Sender: FDA-Public Use
  Company Number: CA-ELI_LILLY_AND_COMPANY-CA200712000236

PATIENT
  Age: 15 Year
  Sex: Male
  Weight: 102.04 kg

DRUGS (7)
  1. STRATTERA [Suspect]
     Indication: ATTENTION DEFICIT/HYPERACTIVITY DISORDER
     Dosage: 58 MG, UNK
     Dates: start: 20050901, end: 20060701
  2. STRATTERA [Suspect]
     Dates: start: 20061101
  3. STRATTERA [Suspect]
     Dosage: 40 MG, UNK
     Route: 048
     Dates: start: 20070801, end: 20070801
  4. STRATTERA [Suspect]
     Dosage: 80 MG, UNK
     Route: 048
     Dates: start: 20070801, end: 20070907
  5. STRATTERA [Suspect]
     Dosage: 100 MG, UNK
     Dates: start: 20070901, end: 20071102
  6. RISPERDAL [Concomitant]
     Dosage: 1 MG, EACH MORNING
  7. RISPERDAL [Concomitant]
     Dosage: 0.5 MG, EACH EVENING

REACTIONS (3)
  - ALANINE AMINOTRANSFERASE ABNORMAL [None]
  - HEPATIC STEATOSIS [None]
  - LIVER FUNCTION TEST ABNORMAL [None]
